FAERS Safety Report 18616752 (Version 1)
Quarter: 2020Q4

REPORT INFORMATION
  Report Type: Spontaneous
  Country: SI (occurrence: SI)
  Receive Date: 20201215
  Receipt Date: 20201215
  Transmission Date: 20210114
  Serious: Yes (Other)
  Sender: FDA-Public Use
  Company Number: SI-TEVA-2020-SI-1857235

PATIENT
  Age: 36 Year
  Sex: Female

DRUGS (5)
  1. REGLAN [Concomitant]
     Active Substance: METOCLOPRAMIDE HYDROCHLORIDE
  2. EMEND [Concomitant]
     Active Substance: APREPITANT
  3. PACLITAXIN 6 MG/ML, KONCENTRAT ZA RAZTOPINO ZA INFUNDIRANJE [Suspect]
     Active Substance: PACLITAXEL
     Indication: BREAST CANCER
     Dosage: 230 MG, VIAL
     Route: 042
     Dates: start: 20200527, end: 20200709
  4. NEULASTA [Concomitant]
     Active Substance: PEGFILGRASTIM
     Dosage: PRE-FILLED SYRINGE
  5. DEXAMETHASONE. [Concomitant]
     Active Substance: DEXAMETHASONE

REACTIONS (1)
  - Liver disorder [Not Recovered/Not Resolved]

NARRATIVE: CASE EVENT DATE: 20200610
